FAERS Safety Report 21212141 (Version 1)
Quarter: 2022Q3

REPORT INFORMATION
  Report Type: Report from Study
  Country: AU (occurrence: AU)
  Receive Date: 20220815
  Receipt Date: 20220815
  Transmission Date: 20221027
  Serious: Yes (Other)
  Sender: FDA-Public Use
  Company Number: AU-GLAXOSMITHKLINE-AU2022GSK117651

PATIENT

DRUGS (3)
  1. ALBUTEROL SULFATE [Suspect]
     Active Substance: ALBUTEROL SULFATE
     Indication: Tocolysis
     Dosage: 5 MG(DILUTED IN 100 ML NORMAL SALINE ADMINISTERED AT RATE 12 ML/H)
  2. NIFEDIPINE [Suspect]
     Active Substance: NIFEDIPINE
     Indication: Tocolysis
     Dosage: 60 MG
     Route: 048
  3. SODIUM CHLORIDE [Suspect]
     Active Substance: SODIUM CHLORIDE
     Indication: Product used for unknown indication
     Dosage: 100 ML (AT A RATE OF 12 ML/H)

REACTIONS (3)
  - Chest pain [Unknown]
  - Electrocardiogram ST segment elevation [Unknown]
  - Exposure during pregnancy [Unknown]
